FAERS Safety Report 7417542-7 (Version None)
Quarter: 2011Q2

REPORT INFORMATION
  Report Type: 
  Country: None (occurrence: None)
  Receive Date: 20110415
  Receipt Date: 20110405
  Transmission Date: 20111010
  Serious: Yes (Other)
  Sender: FDA-Public Use
  Company Number: US-NOVOPROD-326147

PATIENT
  Sex: Female
  Weight: 79.365 kg

DRUGS (4)
  1. GLIPIZIDE [Concomitant]
     Indication: TYPE 2 DIABETES MELLITUS
  2. LEVEMIR [Suspect]
     Indication: TYPE 2 DIABETES MELLITUS
     Dosage: UNK
     Route: 058
     Dates: start: 20090101
  3. NOVOLOG [Suspect]
     Indication: TYPE 2 DIABETES MELLITUS
     Dosage: UNK
     Route: 058
     Dates: start: 20090101
  4. LUPRON [Concomitant]
     Indication: PELVIC PAIN

REACTIONS (6)
  - DEHYDRATION [None]
  - INCORRECT PRODUCT STORAGE [None]
  - NAUSEA [None]
  - PELVIC PAIN [None]
  - KIDNEY INFECTION [None]
  - VOMITING [None]
